FAERS Safety Report 9471357 (Version 1)
Quarter: 2013Q3

REPORT INFORMATION
  Report Type: Spontaneous
  Country: FR (occurrence: FR)
  Receive Date: 20130822
  Receipt Date: 20130822
  Transmission Date: 20140515
  Serious: Yes (Life-Threatening, Other)
  Sender: FDA-Public Use
  Company Number: FR-ASTRAZENECA-2013SE64304

PATIENT
  Age: 20293 Day
  Sex: Male

DRUGS (7)
  1. INEXIUM [Suspect]
     Route: 048
     Dates: start: 20130426, end: 20130501
  2. INEXIUM [Suspect]
     Route: 048
     Dates: start: 20130504
  3. DIFFU K [Suspect]
     Indication: HYPOKALAEMIA
     Route: 048
     Dates: start: 20130427, end: 20130501
  4. HEPARINE SODIQUE [Suspect]
     Indication: ISCHAEMIC STROKE
     Route: 042
     Dates: start: 20130421, end: 20130501
  5. AMOXICILLINE ACIDE CLAVULANIQUE SANDOZ [Suspect]
     Indication: LUNG DISORDER
     Route: 042
     Dates: start: 20130422, end: 20130501
  6. PROZAC [Suspect]
     Route: 048
     Dates: start: 20130426, end: 20130503
  7. TAHOR [Concomitant]

REACTIONS (7)
  - Melaena [Recovered/Resolved]
  - Anaemia [Recovered/Resolved]
  - Hypotension [Recovered/Resolved]
  - Prothrombin time shortened [Unknown]
  - Renal impairment [Unknown]
  - Hepatocellular injury [Unknown]
  - Gastric ulcer [Unknown]
